FAERS Safety Report 18622738 (Version 1)
Quarter: 2020Q4

REPORT INFORMATION
  Report Type: Spontaneous
  Country: FR (occurrence: FR)
  Receive Date: 20201216
  Receipt Date: 20201216
  Transmission Date: 20210114
  Serious: Yes (Hospitalization)
  Sender: FDA-Public Use
  Company Number: FR-ROCHE-2734083

PATIENT
  Age: 18 Year
  Sex: Male
  Weight: 56 kg

DRUGS (15)
  1. CREON [Concomitant]
     Active Substance: PANCRELIPASE AMYLASE\PANCRELIPASE LIPASE\PANCRELIPASE PROTEASE
     Indication: PANCREATIC FAILURE
     Route: 048
     Dates: start: 20030719
  2. A 313 [Concomitant]
     Active Substance: RETINOL
     Route: 048
  3. ACIDE FOLIQUE [Concomitant]
     Active Substance: FOLIC ACID
     Route: 048
  4. TOCO [Concomitant]
     Active Substance: .ALPHA.-TOCOPHEROL ACETATE, D-
     Route: 048
  5. ADVAGRAF [Concomitant]
     Active Substance: TACROLIMUS
     Indication: LIVER TRANSPLANT
     Route: 048
     Dates: start: 202008
  6. CELLCEPT [Suspect]
     Active Substance: MYCOPHENOLATE MOFETIL\MYCOPHENOLATE MOFETIL HYDROCHLORIDE
     Indication: LIVER TRANSPLANT
     Route: 048
     Dates: start: 202008, end: 20201120
  7. BACTRIM [Suspect]
     Active Substance: SULFAMETHOXAZOLE\TRIMETHOPRIM
     Indication: LUNG DISORDER
     Route: 048
     Dates: start: 20201117, end: 20201121
  8. CIPROFLOXACINE [Suspect]
     Active Substance: CIPROFLOXACIN
     Indication: LUNG DISORDER
     Route: 048
     Dates: start: 20201117, end: 20201121
  9. BACTRIM [Concomitant]
     Active Substance: SULFAMETHOXAZOLE\TRIMETHOPRIM
     Indication: ANTIBIOTIC PROPHYLAXIS
     Route: 048
     Dates: start: 202008, end: 20201116
  10. URSOLVAN [Concomitant]
     Active Substance: URSODIOL
     Indication: HEPATIC FAILURE
     Route: 048
     Dates: start: 20030719
  11. SODIUM [Concomitant]
     Active Substance: SODIUM
     Route: 048
  12. KARDEGIC [Concomitant]
     Active Substance: ASPIRIN DL-LYSINE
     Route: 048
  13. AZITHROMYCINE [Concomitant]
     Active Substance: AZITHROMYCIN
     Indication: PROPHYLAXIS
     Dosage: TOUS LES LUNDIS, MERCREDIS OU VENDREDIS
     Route: 048
     Dates: end: 20201124
  14. PANTOPRAZOLE [Concomitant]
     Active Substance: PANTOPRAZOLE
     Route: 048
  15. ORKAMBI [Concomitant]
     Active Substance: IVACAFTOR\LUMACAFTOR
     Indication: CYSTIC FIBROSIS
     Route: 048
     Dates: start: 20160727

REACTIONS (1)
  - Agranulocytosis [Recovering/Resolving]

NARRATIVE: CASE EVENT DATE: 20201122
